FAERS Safety Report 7404787-5 (Version None)
Quarter: 2011Q2

REPORT INFORMATION
  Report Type: 
  Country: None (occurrence: None)
  Receive Date: 20110411
  Receipt Date: 20091122
  Transmission Date: 20111010
  Serious: Yes (Death, Hospitalization, Other)
  Sender: FDA-Public Use
  Company Number: US-BAYER-200940302NA

PATIENT
  Age: 44 Year
  Sex: Male
  Weight: 75.737 kg

DRUGS (20)
  1. CONTRAST MEDIA [Concomitant]
     Indication: CATHETERISATION CARDIAC
     Dosage: UNK
     Dates: start: 20020913
  2. LACTULOSE [Concomitant]
     Dosage: 20 GRAMS THREE TIMES A DAY
     Route: 048
  3. LIDOCAINE [Concomitant]
     Dosage: 1 MG/MIN
     Route: 041
     Dates: start: 20021009
  4. PROTAMINE SULFATE [Concomitant]
     Dosage: UNK
     Route: 042
     Dates: start: 20021009
  5. BETAPACE [Concomitant]
     Dosage: 40 MG TWICE DAILY
     Route: 048
  6. NITROGLYCERIN [Concomitant]
     Dosage: 0.5 MCG/KG/MIN
     Route: 041
     Dates: start: 20021009
  7. ALBUTEROL [Concomitant]
     Dosage: 2 PUFF(S), BID INHALANT
     Route: 055
  8. LEVAQUIN [Concomitant]
     Indication: CELLULITIS
     Dosage: UNK
     Dates: start: 20020605
  9. TOBRAMYCIN [Concomitant]
     Dosage: 48 HOURS
     Route: 042
     Dates: start: 20021010, end: 20021012
  10. LASIX [Concomitant]
     Indication: ASCITES
     Dosage: 40 MG, DAILY
     Route: 048
  11. VANCOMYCIN [Concomitant]
     Dosage: 48 HOURS
     Route: 042
     Dates: start: 20021010, end: 20021012
  12. CELEXA [Concomitant]
     Dosage: 20 MG DAILY
     Route: 048
  13. HEPARIN [Concomitant]
     Dosage: UNK
     Route: 042
     Dates: start: 20021009
  14. MULTIPLE VITAMIN [Concomitant]
     Dosage: 1 DAILY
     Route: 048
  15. VANCOMYCIN [Concomitant]
     Dosage: UNK
     Route: 042
     Dates: start: 20020514
  16. ALDACTONE [Concomitant]
     Dosage: 50 MG, BID
     Route: 048
  17. CEPHALEXIN [Concomitant]
     Indication: CELLULITIS
     Dosage: UNK
     Dates: start: 20020605
  18. ACE INHIBITOR NOS [Concomitant]
  19. TRASYLOL [Suspect]
     Indication: AORTIC VALVE REPLACEMENT
     Dosage: UNK
     Route: 042
     Dates: start: 20021001
  20. DOPAMINE HYDROCHLORIDE [Concomitant]
     Dosage: RENAL DOSE
     Route: 041
     Dates: start: 20021020, end: 20021026

REACTIONS (13)
  - DEATH [None]
  - MULTI-ORGAN FAILURE [None]
  - RENAL INJURY [None]
  - ANHEDONIA [None]
  - STRESS [None]
  - INJURY [None]
  - RENAL FAILURE [None]
  - ANXIETY [None]
  - UNEVALUABLE EVENT [None]
  - RENAL IMPAIRMENT [None]
  - EMOTIONAL DISTRESS [None]
  - PAIN [None]
  - FEAR [None]
